FAERS Safety Report 17223405 (Version 1)
Quarter: 2020Q1

REPORT INFORMATION
  Report Type: Spontaneous
  Country: CN (occurrence: CN)
  Receive Date: 20200102
  Receipt Date: 20200102
  Transmission Date: 20200409
  Serious: Yes (Other)
  Sender: FDA-Public Use
  Company Number: CN-ROCHE-2507371

PATIENT
  Age: 51 Year
  Sex: Female
  Weight: 55 kg

DRUGS (1)
  1. AVASTIN [Suspect]
     Active Substance: BEVACIZUMAB
     Indication: GLIOSIS
     Route: 041
     Dates: start: 20191023, end: 20191023

REACTIONS (4)
  - Intentional product use issue [Unknown]
  - Off label use [Unknown]
  - Renal impairment [Recovering/Resolving]
  - Hypertension [Unknown]
